FAERS Safety Report 26022306 (Version 2)
Quarter: 2025Q4

REPORT INFORMATION
  Report Type: Spontaneous
  Country: CA (occurrence: CA)
  Receive Date: 20251110
  Receipt Date: 20251215
  Transmission Date: 20260117
  Serious: Yes (Life-Threatening, Hospitalization)
  Sender: MYLAN
  Company Number: CA-MYLANLABS-2025M1095340

PATIENT
  Age: 35 Year
  Sex: Male
  Weight: 58 kg

DRUGS (4)
  1. VALPROIC ACID [Suspect]
     Active Substance: VALPROIC ACID
     Indication: Product used for unknown indication
     Dosage: 88 GRAM (MASSIVE INGESTION OF VALPROIC ACID (VPA))
     Route: 061
  2. VALPROIC ACID [Suspect]
     Active Substance: VALPROIC ACID
     Dosage: 88 GRAM (MASSIVE INGESTION OF VALPROIC ACID (VPA))
     Route: 048
  3. VALPROIC ACID [Suspect]
     Active Substance: VALPROIC ACID
     Dosage: 88 GRAM (MASSIVE INGESTION OF VALPROIC ACID (VPA))
     Route: 048
  4. VALPROIC ACID [Suspect]
     Active Substance: VALPROIC ACID
     Dosage: 88 GRAM (MASSIVE INGESTION OF VALPROIC ACID (VPA))
     Route: 061

REACTIONS (3)
  - Hypotension [Recovering/Resolving]
  - Toxicity to various agents [Recovering/Resolving]
  - Intentional overdose [Recovering/Resolving]
